FAERS Safety Report 20197073 (Version 2)
Quarter: 2022Q1

REPORT INFORMATION
  Report Type: Spontaneous
  Country: AR (occurrence: AR)
  Receive Date: 20211217
  Receipt Date: 20220107
  Transmission Date: 20220423
  Serious: Yes (Hospitalization, Other)
  Sender: FDA-Public Use
  Company Number: AR-ALKEM LABORATORIES LIMITED-AR-ALKEM-2021-07555

PATIENT
  Age: 14 Year

DRUGS (1)
  1. AMLODIPINE BESYLATE [Suspect]
     Active Substance: AMLODIPINE BESYLATE
     Indication: Product used for unknown indication
     Dosage: 300 MILLIGRAM ((30 10 MG TABLETS)
     Route: 065

REACTIONS (5)
  - Suicidal ideation [Unknown]
  - Hypotension [Unknown]
  - Overdose [Unknown]
  - Tachycardia [Unknown]
  - Pulmonary oedema [Unknown]
